FAERS Safety Report 8203844-3 (Version None)
Quarter: 2012Q1

REPORT INFORMATION
  Report Type: 
  Country: None (occurrence: None)
  Receive Date: 20120308
  Receipt Date: 20120228
  Transmission Date: 20120608
  Serious: Yes (Hospitalization)
  Sender: FDA-Public Use
  Company Number: 2012SP011262

PATIENT
  Age: 78 Year
  Sex: Female

DRUGS (7)
  1. ACETYLCYSTEINE [Suspect]
     Indication: SUPERINFECTION
     Dosage: PO
     Route: 048
     Dates: start: 20120127, end: 20120131
  2. ASPIRIN [Concomitant]
  3. RAMIPRIL [Concomitant]
  4. PRAVASTATIN [Concomitant]
  5. AMOXICILLIN TRIHYDRATE [Suspect]
     Indication: SUPERINFECTION
     Dosage: PO
     Route: 048
     Dates: start: 20120127, end: 20120131
  6. MIRTAZAPINE [Suspect]
     Indication: PRODUCT USED FOR UNKNOWN INDICATION
     Dosage: PO
     Route: 048
     Dates: start: 20120127, end: 20120131
  7. BISOPROLOL FUMARATE [Concomitant]

REACTIONS (4)
  - MALAISE [None]
  - PYREXIA [None]
  - ACUTE GENERALISED EXANTHEMATOUS PUSTULOSIS [None]
  - GENERAL PHYSICAL HEALTH DETERIORATION [None]
